FAERS Safety Report 6726248-9 (Version None)
Quarter: 2010Q2

REPORT INFORMATION
  Report Type: 
  Country: None (occurrence: None)
  Receive Date: 20100514
  Receipt Date: 20100505
  Transmission Date: 20101027
  Serious: Yes (Other)
  Sender: FDA-Public Use
  Company Number: BR-ASTRAZENECA-2010SE20619

PATIENT
  Age: 66 Year
  Sex: Male
  Weight: 90 kg

DRUGS (6)
  1. SELOZOK [Suspect]
     Indication: HYPERTENSION
     Route: 048
     Dates: start: 20040101
  2. OMEPRAZOLE [Suspect]
     Route: 048
     Dates: start: 20070101
  3. CRESTOR [Suspect]
     Indication: HYPERCHOLESTEROLAEMIA
     Route: 048
  4. CRESTOR [Suspect]
     Route: 048
     Dates: start: 20080515
  5. DIOVAN [Concomitant]
     Indication: HYPERTENSION
     Route: 048
     Dates: start: 20040101
  6. STARFRORM [Concomitant]
     Route: 048

REACTIONS (6)
  - BLOOD CHOLESTEROL INCREASED [None]
  - BLOOD PARATHYROID HORMONE INCREASED [None]
  - BLOOD URIC ACID INCREASED [None]
  - HYPERCALCAEMIA [None]
  - SURGERY [None]
  - VITAMIN D DEFICIENCY [None]
